FAERS Safety Report 4522324-X (Version None)
Quarter: 2004Q4

REPORT INFORMATION
  Report Type: 
  Country: None (occurrence: None)
  Receive Date: 20041116
  Receipt Date: 20040806
  Transmission Date: 20050328
  Serious: No
  Sender: FDA-Public Use
  Company Number: S04-USA-05604-01

PATIENT
  Age: 83 Year
  Sex: Female
  Weight: 64.4108 kg

DRUGS (15)
  1. NAMENDA [Suspect]
     Indication: DEMENTIA
     Dosage: 10 MG BID PO
     Route: 048
     Dates: start: 20040526, end: 20040702
  2. NAMENDA [Suspect]
     Indication: DEMENTIA
     Dosage: 5 MG QD PO
     Route: 048
     Dates: start: 20040505, end: 20040511
  3. NAMENDA [Suspect]
     Indication: DEMENTIA
     Dosage: 10 MG QD PO
     Route: 048
     Dates: start: 20040512, end: 20040518
  4. NAMENDA [Suspect]
     Indication: DEMENTIA
     Dosage: 15 MG QD PO
     Route: 048
     Dates: start: 20040519, end: 20040525
  5. ACTONEL [Concomitant]
  6. DILANTIN [Concomitant]
  7. ZOLOFT [Concomitant]
  8. PREVACID [Concomitant]
  9. LESCOL [Concomitant]
  10. RELAFEN [Concomitant]
  11. LOPRESSOR [Concomitant]
  12. KLOR-CON [Concomitant]
  13. ZOLOFT [Concomitant]
  14. CALCIUM + VITAMIN D (CALCIUM) [Concomitant]
  15. ARICEPT [Concomitant]

REACTIONS (3)
  - ABNORMAL BEHAVIOUR [None]
  - DISTURBANCE IN ATTENTION [None]
  - WEIGHT DECREASED [None]
